FAERS Safety Report 14861079 (Version 1)
Quarter: 2018Q2

REPORT INFORMATION
  Report Type: Spontaneous
  Country: US (occurrence: US)
  Receive Date: 20180508
  Receipt Date: 20180508
  Transmission Date: 20180711
  Serious: No
  Sender: FDA-Public Use
  Company Number: US-BEH-2018090410

PATIENT
  Sex: Male

DRUGS (16)
  1. PULMOZYME [Concomitant]
     Active Substance: DORNASE ALFA
  2. TAMIFLU [Concomitant]
     Active Substance: OSELTAMIVIR PHOSPHATE
  3. CEFDINIR. [Concomitant]
     Active Substance: CEFDINIR
  4. PENICILLIN V POTASSIUM. [Concomitant]
     Active Substance: PENICILLIN V POTASSIUM
  5. MYCOPHENOLATE SODIUM [Concomitant]
     Active Substance: MYCOPHENOLATE SODIUM
  6. PREDNISONE. [Concomitant]
     Active Substance: PREDNISONE
  7. SULFAMETHOXAZOLE [Concomitant]
     Active Substance: SULFAMETHOXAZOLE
  8. FLUTICASONE PROPIONATE. [Concomitant]
     Active Substance: FLUTICASONE PROPIONATE
  9. OSELTAMIVIR PHOSPHATE. [Concomitant]
     Active Substance: OSELTAMIVIR PHOSPHATE
  10. PROAIR HFA [Concomitant]
     Active Substance: ALBUTEROL SULFATE
  11. HIZENTRA [Suspect]
     Active Substance: HUMAN IMMUNOGLOBULIN G
     Indication: IMMUNODEFICIENCY COMMON VARIABLE
     Dosage: 22 G, QOW
     Route: 058
     Dates: start: 2015
  12. AMOXICILLIN. [Concomitant]
     Active Substance: AMOXICILLIN
  13. HIZENTRA [Suspect]
     Active Substance: HUMAN IMMUNOGLOBULIN G
     Dosage: 22 G, TOT
     Route: 058
  14. ONDANSETRON [Concomitant]
     Active Substance: ONDANSETRON
  15. RANITIDINE HCL [Concomitant]
     Active Substance: RANITIDINE HYDROCHLORIDE
  16. APRISO [Concomitant]
     Active Substance: MESALAMINE

REACTIONS (6)
  - Injection site swelling [Recovered/Resolved]
  - Nasopharyngitis [Unknown]
  - Body temperature decreased [Unknown]
  - Headache [Unknown]
  - Injection site erythema [Recovered/Resolved]
  - Rhinorrhoea [Unknown]
